FAERS Safety Report 6790096-4 (Version None)
Quarter: 2010Q2

REPORT INFORMATION
  Report Type: 
  Country: None (occurrence: None)
  Receive Date: 20100624
  Receipt Date: 20100617
  Transmission Date: 20101027
  Serious: Yes (Other)
  Sender: FDA-Public Use
  Company Number: US-SANOFI-AVENTIS-2010SA025871

PATIENT
  Age: 78 Year
  Sex: Male
  Weight: 88 kg

DRUGS (15)
  1. MULTAQ [Suspect]
     Indication: ATRIAL FIBRILLATION
     Route: 048
     Dates: start: 20100407
  2. HUMULIN 70/30 [Suspect]
  3. METFORMIN [Concomitant]
     Route: 048
  4. MILK OF MAGNESIA TAB [Concomitant]
     Indication: CONSTIPATION
     Route: 048
  5. BISACODYL [Concomitant]
     Indication: CONSTIPATION
     Dosage: SUPPOSITORIES OR RECTAL ENEMA
  6. GARLIC [Concomitant]
  7. K-DUR [Concomitant]
  8. LASIX [Concomitant]
  9. TYLENOL (CAPLET) [Concomitant]
     Indication: PAIN
     Dosage: PRN 1 TO 2 TABS
  10. ASPIRIN [Concomitant]
  11. SIMVASTATIN [Concomitant]
  12. CARDIZEM [Concomitant]
  13. PROAIR HFA [Concomitant]
     Dosage: 108 MCG/ACT 2 PUFFS FOUR TIMES DAILY X 5 DAYS THEN PRN
  14. LORATADINE [Concomitant]
  15. TUSSIONEX [Concomitant]
     Indication: COUGH
     Dosage: 8-10 MG/5ML 1/2 -1 TEASPOON EVERY 12 HOURS PRN FOR COUGH

REACTIONS (1)
  - HYPOGLYCAEMIA [None]
